FAERS Safety Report 7894458-3 (Version None)
Quarter: 2011Q4

REPORT INFORMATION
  Report Type: 
  Country: None (occurrence: None)
  Receive Date: 20111105
  Receipt Date: 20111026
  Transmission Date: 20120403
  Serious: Yes (Life-Threatening)
  Sender: FDA-Public Use
  Company Number: JP-ASTRAZENECA-2011SE65895

PATIENT
  Age: 77 Year
  Sex: Male
  Weight: 61 kg

DRUGS (2)
  1. LIPITOR [Concomitant]
     Indication: BLOOD CHOLESTEROL ABNORMAL
     Route: 048
     Dates: start: 20100301, end: 20111022
  2. CANDESARTAN CILEXETIL AND HYDROCHLOROTHIAZIDE [Suspect]
     Indication: HYPERTENSION
     Dosage: 1 DOSAGE FORM DAILY
     Route: 048
     Dates: start: 20100301, end: 20111022

REACTIONS (1)
  - LOSS OF CONSCIOUSNESS [None]
